FAERS Safety Report 19905627 (Version 1)
Quarter: 2021Q4

REPORT INFORMATION
  Report Type: Spontaneous
  Country: JP (occurrence: JP)
  Receive Date: 20211001
  Receipt Date: 20211001
  Transmission Date: 20220303
  Serious: Yes (Death, Other)
  Sender: FDA-Public Use
  Company Number: JP-GILEAD-2021-0550547

PATIENT
  Age: 83 Year
  Sex: Male

DRUGS (4)
  1. VEKLURY [Suspect]
     Active Substance: REMDESIVIR
     Indication: COVID-19
     Dosage: 100 MG
     Route: 065
  2. OLUMIANT [Concomitant]
     Active Substance: BARICITINIB
     Dosage: 4 MG
  3. DEXAMETHASONE [Concomitant]
     Active Substance: DEXAMETHASONE
     Dosage: 6 MG
  4. ACTEMRA [Concomitant]
     Active Substance: TOCILIZUMAB
     Dosage: 400 MG

REACTIONS (1)
  - Death [Fatal]
